FAERS Safety Report 8525580-6 (Version None)
Quarter: 2012Q3

REPORT INFORMATION
  Report Type: 
  Country: None (occurrence: None)
  Receive Date: 20120720
  Receipt Date: 20120524
  Transmission Date: 20120928
  Serious: No
  Sender: FDA-Public Use
  Company Number: US-009507513-1207USA005573

PATIENT

DRUGS (2)
  1. MIRALAX [Suspect]
     Indication: MEDICAL OBSERVATION
     Dosage: 7.5 G, ONCE
     Route: 048
     Dates: start: 20120523
  2. MIRALAX [Suspect]
     Indication: PRODUCT USED FOR UNKNOWN INDICATION
     Dosage: 7.5 G, ONCE
     Route: 048
     Dates: start: 20120501, end: 20120501

REACTIONS (3)
  - UNDERDOSE [None]
  - FEELING ABNORMAL [None]
  - ABDOMINAL PAIN UPPER [None]
